FAERS Safety Report 4478480-5 (Version None)
Quarter: 2004Q4

REPORT INFORMATION
  Report Type: 
  Country: None (occurrence: None)
  Receive Date: 20041014
  Receipt Date: 20041004
  Transmission Date: 20050328
  Serious: Yes (Hospitalization)
  Sender: FDA-Public Use
  Company Number: TPA2004A01206

PATIENT
  Age: 46 Year
  Sex: Male
  Weight: 117.9352 kg

DRUGS (11)
  1. ACTOS [Suspect]
     Indication: DIABETES MELLITUS NON-INSULIN-DEPENDENT
     Dosage: 45 MG, 1 IN 1 D, PER ORAL
     Route: 048
     Dates: start: 20010301, end: 20031201
  2. GLUCOTROL XL (GLIPIZIDE) (10 MILLIGRAM) [Concomitant]
     Indication: DIABETES MELLITUS NON-INSULIN-DEPENDENT
     Dosage: 45 MG, 1 IN 1 D, PER ORAL
     Route: 048
     Dates: start: 20010301, end: 20031201
  3. GLUCOTROL XL (GLIPIZIDE) (10 MILLIGRAM) [Concomitant]
  4. GLUCOPHAGE [Concomitant]
  5. COREG [Concomitant]
  6. METOLAZONE [Concomitant]
  7. ALDACTONE [Concomitant]
  8. LASIX [Concomitant]
  9. POTASSIUM CHLORIDE [Concomitant]
  10. ATACAND [Concomitant]
  11. LEXAPRO [Concomitant]

REACTIONS (3)
  - CARDIOMYOPATHY [None]
  - HEADACHE [None]
  - PAIN [None]
